FAERS Safety Report 11527625 (Version 1)
Quarter: 2015Q3

REPORT INFORMATION
  Report Type: Spontaneous
  Country: US (occurrence: US)
  Receive Date: 20150903
  Receipt Date: 20150903
  Transmission Date: 20151125
  Serious: No
  Sender: FDA-Public Use
  Company Number: US-ELI_LILLY_AND_COMPANY-US200905000114

PATIENT
  Age: 71 Year
  Sex: Male

DRUGS (8)
  1. WELCHOL [Concomitant]
     Active Substance: COLESEVELAM HYDROCHLORIDE
  2. NIASPAN [Concomitant]
     Active Substance: NIACIN
  3. COREG [Concomitant]
     Active Substance: CARVEDILOL
  4. LANTUS [Concomitant]
     Active Substance: INSULIN GLARGINE
  5. ZETIA [Concomitant]
     Active Substance: EZETIMIBE
  6. HUMALOG [Suspect]
     Active Substance: INSULIN LISPRO
     Indication: TYPE 2 DIABETES MELLITUS
  7. PLAVIX [Concomitant]
     Active Substance: CLOPIDOGREL BISULFATE
  8. DIOVAN [Concomitant]
     Active Substance: VALSARTAN

REACTIONS (4)
  - Drug ineffective [Not Recovered/Not Resolved]
  - Blood glucose increased [Not Recovered/Not Resolved]
  - Incision site haemorrhage [Recovered/Resolved]
  - Elective surgery [Recovered/Resolved]

NARRATIVE: CASE EVENT DATE: 20090320
